FAERS Safety Report 18183876 (Version 1)
Quarter: 2020Q3

REPORT INFORMATION
  Report Type: Report from Study
  Country: None (occurrence: CA)
  Receive Date: 20200823
  Receipt Date: 20200823
  Transmission Date: 20201103
  Serious: Yes (Death)
  Sender: FDA-Public Use
  Company Number: CA-HLS-202001102

PATIENT
  Age: 69 Year
  Sex: Male

DRUGS (5)
  1. CLOZARIL [Suspect]
     Active Substance: CLOZAPINE
     Indication: PSYCHOTIC DISORDER
     Dosage: 112.5 MILLIGRAM
     Route: 048
  2. RIVASTIGMINE. [Concomitant]
     Active Substance: RIVASTIGMINE
     Route: 065
  3. LEVODOPA [Concomitant]
     Active Substance: LEVODOPA
     Dosage: NOT SPECIFIED
     Route: 065
  4. MIDODRINE [Concomitant]
     Active Substance: MIDODRINE
     Route: 065
  5. ASA [Concomitant]
     Active Substance: ASPIRIN
     Dosage: NOT SPECIFIED
     Route: 065

REACTIONS (2)
  - Dysphagia [Fatal]
  - Pneumonia aspiration [Fatal]
